FAERS Safety Report 17523422 (Version 1)
Quarter: 2020Q1

REPORT INFORMATION
  Report Type: Spontaneous
  Country: CN (occurrence: CN)
  Receive Date: 20200310
  Receipt Date: 20200310
  Transmission Date: 20200409
  Serious: Yes (Hospitalization, Other)
  Sender: FDA-Public Use
  Company Number: CN-GE HEALTHCARE LIFE SCIENCES-2020CSU000954

PATIENT

DRUGS (7)
  1. OMNIPAQUE [Suspect]
     Active Substance: IOHEXOL
     Indication: ARTERIOGRAM
  2. OMNIPAQUE [Suspect]
     Active Substance: IOHEXOL
     Indication: PERFUSION BRAIN SCAN
  3. OMNIPAQUE [Suspect]
     Active Substance: IOHEXOL
     Indication: DYSARTHRIA
  4. OMNIPAQUE [Suspect]
     Active Substance: IOHEXOL
     Indication: THROMBOEMBOLECTOMY
  5. OMNIPAQUE [Suspect]
     Active Substance: IOHEXOL
     Indication: MUSCULAR WEAKNESS
  6. OMNIPAQUE [Suspect]
     Active Substance: IOHEXOL
     Indication: COMPUTERISED TOMOGRAM HEAD
  7. OMNIPAQUE [Suspect]
     Active Substance: IOHEXOL
     Indication: ANGIOGRAM
     Dosage: UNK UNK, SINGLE
     Route: 013

REACTIONS (1)
  - Optic nerve injury [Recovered/Resolved]
